FAERS Safety Report 13420267 (Version 1)
Quarter: 2017Q2

REPORT INFORMATION
  Report Type: Spontaneous
  Country: GB (occurrence: US)
  Receive Date: 20170407
  Receipt Date: 20170407
  Transmission Date: 20170830
  Serious: Yes (Other)
  Sender: FDA-Public Use
  Company Number: GB-ASTRAZENECA-2017SE35010

PATIENT
  Sex: Female

DRUGS (2)
  1. TAGRISSO [Suspect]
     Active Substance: OSIMERTINIB
     Dosage: 80.0MG UNKNOWN
     Route: 048
  2. GEFITINIB [Suspect]
     Active Substance: GEFITINIB
     Route: 048

REACTIONS (5)
  - Asthenia [Unknown]
  - Lower limb fracture [Unknown]
  - Fall [Unknown]
  - EGFR gene mutation [Unknown]
  - Weight decreased [Unknown]
